FAERS Safety Report 16054905 (Version 1)
Quarter: 2019Q1

REPORT INFORMATION
  Report Type: Spontaneous
  Country: IT (occurrence: IT)
  Receive Date: 20190310
  Receipt Date: 20190310
  Transmission Date: 20190418
  Serious: Yes (Other)
  Sender: FDA-Public Use
  Company Number: IT-ACCORD-111844

PATIENT
  Age: 51 Year
  Sex: Male

DRUGS (3)
  1. DEPAKIN CHRONO [Concomitant]
     Active Substance: VALPROIC ACID
     Dosage: STRENGTH: 500 MG
     Route: 048
  2. ARIPIPRAZOLE ACCORD [Suspect]
     Active Substance: ARIPIPRAZOLE
     Indication: PRODUCT USED FOR UNKNOWN INDICATION
     Route: 048
     Dates: start: 20171106, end: 20180724
  3. LITHIUM. [Concomitant]
     Active Substance: LITHIUM
     Dosage: STRENGTH: 300 MG
     Route: 048

REACTIONS (2)
  - Weight increased [Not Recovered/Not Resolved]
  - Schizophrenia [Not Recovered/Not Resolved]

NARRATIVE: CASE EVENT DATE: 20171201
